FAERS Safety Report 9190612 (Version 2)
Quarter: 2013Q1

REPORT INFORMATION
  Report Type: Spontaneous
  Country: US (occurrence: None)
  Receive Date: 20130322
  Receipt Date: 20130329
  Transmission Date: 20140127
  Serious: Yes (Hospitalization)
  Sender: FDA-Public Use
  Company Number: USA/USA/13/0028590

PATIENT
  Age: 68 Year
  Sex: Female

DRUGS (2)
  1. ALLOPURINOL [Suspect]
     Indication: PRODUCT USED FOR UNKNOWN INDICATION
     Dosage: UNKNOWN
  2. MYCOPHENOLATE MOFETIL (MYCOPHENOLATE MOFETIL) [Suspect]
     Indication: PRODUCT USED FOR UNKNOWN INDICATION
     Dosage: UNKNOWN

REACTIONS (22)
  - Stevens-Johnson syndrome [None]
  - Myocarditis [None]
  - Hyperglycaemia [None]
  - Conduction disorder [None]
  - Electrocardiogram ST segment elevation [None]
  - Troponin increased [None]
  - Coronary artery disease [None]
  - Ejection fraction decreased [None]
  - Dilatation ventricular [None]
  - Right ventricular dysfunction [None]
  - Ventricular hypokinesia [None]
  - Ventricular hypokinesia [None]
  - Ventricular dyskinesia [None]
  - Rales [None]
  - Oedema peripheral [None]
  - Jugular vein distension [None]
  - Dyspnoea [None]
  - Hypotension [None]
  - Atrioventricular block complete [None]
  - Pulmonary oedema [None]
  - Pneumatosis intestinalis [None]
  - Fluid overload [None]
